FAERS Safety Report 12711339 (Version 1)
Quarter: 2016Q3

REPORT INFORMATION
  Report Type: Report from Study
  Country: GB (occurrence: GB)
  Receive Date: 20160902
  Receipt Date: 20160902
  Transmission Date: 20161109
  Serious: Yes (Other)
  Sender: FDA-Public Use
  Company Number: GB-ROCHE-1824196

PATIENT
  Age: 74 Year
  Sex: Male

DRUGS (9)
  1. GEMCITABINE HYDROCHLORIDE. [Suspect]
     Active Substance: GEMCITABINE HYDROCHLORIDE
     Indication: PANCREATIC CARCINOMA
     Route: 042
  2. METOPROLOL. [Concomitant]
     Active Substance: METOPROLOL
  3. DEXAMETHASONE. [Concomitant]
     Active Substance: DEXAMETHASONE
  4. ATORVASTATIN [Concomitant]
     Active Substance: ATORVASTATIN
  5. CANDESARTAN [Concomitant]
     Active Substance: CANDESARTAN
  6. CAPECITABINE. [Suspect]
     Active Substance: CAPECITABINE
     Indication: PANCREATIC CARCINOMA
     Route: 048
  7. ASPIRIN. [Concomitant]
     Active Substance: ASPIRIN
  8. BENDROFLUMETHIAZIDE [Concomitant]
     Active Substance: BENDROFLUMETHIAZIDE
  9. METFORMIN [Concomitant]
     Active Substance: METFORMIN HYDROCHLORIDE
     Route: 065

REACTIONS (4)
  - Bile duct obstruction [Recovered/Resolved with Sequelae]
  - Biliary sepsis [Recovered/Resolved]
  - Pneumonitis [Recovered/Resolved with Sequelae]
  - Device occlusion [Recovered/Resolved with Sequelae]

NARRATIVE: CASE EVENT DATE: 20110712
